FAERS Safety Report 8028351-2 (Version None)
Quarter: 2012Q1

REPORT INFORMATION
  Report Type: 
  Country: None (occurrence: None)
  Receive Date: 20120106
  Receipt Date: 20120102
  Transmission Date: 20120608
  Serious: Yes (Hospitalization, Other)
  Sender: FDA-Public Use
  Company Number: PHHY2012ES000588

PATIENT
  Age: 77 Year
  Sex: Male

DRUGS (10)
  1. VALPROIC ACID [Interacting]
     Dosage: 1200 MG, (500-200-500)
     Route: 048
  2. OMEPRAZOLE [Concomitant]
     Dosage: 20 MG, QD
  3. VALPROIC ACID [Interacting]
     Dosage: 500 MG, EVERY 8 HOURS
  4. VALPROIC ACID [Interacting]
     Dosage: 1000 MG, BID
  5. VALPROIC ACID [Interacting]
     Dosage: 1600 MG, INFUSION OVER 20 HOURS
     Route: 042
  6. ENALAPRIL MALEATE [Concomitant]
     Dosage: 5 MG, QD
  7. ATORVASTATIN [Concomitant]
     Dosage: 10 MG, QD
  8. ACENOCOUMAROL [Interacting]
     Indication: ANTICOAGULANT THERAPY
     Dosage: 25 MG, (23.50 TO 25MG PER WEEK)
  9. VALPROIC ACID [Suspect]
     Dosage: 500 MG, BID
  10. BISOPROLOL [Concomitant]
     Dosage: 1.25 MG, QD

REACTIONS (3)
  - DRUG INTERACTION [None]
  - EPILEPSY [None]
  - INTERNATIONAL NORMALISED RATIO INCREASED [None]
